FAERS Safety Report 6824803-9 (Version None)
Quarter: 2010Q3

REPORT INFORMATION
  Report Type: 
  Country: None (occurrence: None)
  Receive Date: 20100708
  Receipt Date: 20100625
  Transmission Date: 20110219
  Serious: Yes (Hospitalization)
  Sender: FDA-Public Use
  Company Number: NL-MYLANLABS-2010S1011701

PATIENT
  Age: 77 Year
  Sex: Male
  Weight: 75 kg

DRUGS (5)
  1. BISOPROLOL [Suspect]
     Indication: CORONARY ANGIOPLASTY
     Dates: start: 20100312, end: 20100401
  2. SIMVASTATIN [Suspect]
     Indication: CORONARY ANGIOPLASTY
     Dates: start: 20100312, end: 20100401
  3. PERINDOPRIL [Suspect]
     Indication: CORONARY ANGIOPLASTY
     Dates: start: 20100312, end: 20100401
  4. PANTOPRAZOLE SODIUM [Suspect]
     Indication: CORONARY ANGIOPLASTY
     Dates: start: 20100312, end: 20100401
  5. CLOPIDOGREL [Suspect]
     Indication: CORONARY ANGIOPLASTY
     Dates: start: 20100312, end: 20100430

REACTIONS (1)
  - HEPATITIS CHOLESTATIC [None]
